FAERS Safety Report 20639386 (Version 1)
Quarter: 2022Q1

REPORT INFORMATION
  Report Type: Report from Study
  Country: MX (occurrence: MX)
  Receive Date: 20220326
  Receipt Date: 20220326
  Transmission Date: 20220423
  Serious: Yes (Life-Threatening)
  Sender: FDA-Public Use
  Company Number: MX-NOVARTISPH-NVSC2021MX295558

PATIENT
  Age: 8 Year
  Sex: Female
  Weight: 41 kg

DRUGS (3)
  1. ELTROMBOPAG OLAMINE [Suspect]
     Active Substance: ELTROMBOPAG OLAMINE
     Indication: Thrombocytopenic purpura
     Dosage: 50 MG, QD
     Route: 048
     Dates: start: 202105
  2. ELTROMBOPAG OLAMINE [Suspect]
     Active Substance: ELTROMBOPAG OLAMINE
     Dosage: 2 DF (50 MG), QD
     Route: 048
     Dates: start: 202106
  3. IMURAN [Concomitant]
     Active Substance: AZATHIOPRINE
     Indication: Product used for unknown indication
     Dosage: UNK UNK, QD (HALF)
     Route: 048

REACTIONS (3)
  - Platelet count decreased [Recovered/Resolved]
  - Platelet count increased [Unknown]
  - Incorrect dose administered [Unknown]

NARRATIVE: CASE EVENT DATE: 20210501
